FAERS Safety Report 7563621-3 (Version None)
Quarter: 2011Q2

REPORT INFORMATION
  Report Type: 
  Country: None (occurrence: None)
  Receive Date: 20110622
  Receipt Date: 20110610
  Transmission Date: 20111010
  Serious: Yes (Other)
  Sender: FDA-Public Use
  Company Number: JP-JNJFOC-20110608141

PATIENT
  Sex: Female

DRUGS (2)
  1. ORTHO-NOVUM 1/35-21 [Suspect]
     Indication: OVULATION DISORDER
     Route: 048
     Dates: start: 20110601, end: 20110606
  2. CONTRACEPTIVE MEDICATION NOS [Suspect]
     Indication: PRODUCT USED FOR UNKNOWN INDICATION
     Route: 065

REACTIONS (13)
  - OFF LABEL USE [None]
  - BLOOD PRESSURE ABNORMAL [None]
  - PARALYSIS [None]
  - AGGRESSION [None]
  - MALAISE [None]
  - DYSPNOEA [None]
  - PALPITATIONS [None]
  - HYPOAESTHESIA [None]
  - CONVULSION [None]
  - IRRITABILITY [None]
  - MENORRHAGIA [None]
  - HAIR GROWTH ABNORMAL [None]
  - DYSMENORRHOEA [None]
